FAERS Safety Report 5374771-4 (Version None)
Quarter: 2007Q2

REPORT INFORMATION
  Report Type: 
  Country: None (occurrence: None)
  Receive Date: 20070629
  Receipt Date: 20070625
  Transmission Date: 20071010
  Serious: Yes (Death)
  Sender: FDA-Public Use
  Company Number: JP-GENENTECH-242511

PATIENT
  Age: 88 Year
  Sex: Female

DRUGS (2)
  1. ACTIVASE [Suspect]
     Indication: CEREBRAL INFARCTION
     Dosage: 24 MG/40 KG
     Route: 042
     Dates: start: 20070528
  2. RADICUT [Concomitant]
     Indication: DRUG USE FOR UNKNOWN INDICATION
     Dosage: 30 MG, UNK
     Dates: start: 20070528

REACTIONS (1)
  - CEREBRAL INFARCTION [None]
